FAERS Safety Report 15710689 (Version 1)
Quarter: 2018Q4

REPORT INFORMATION
  Report Type: Spontaneous
  Country: GB (occurrence: GB)
  Receive Date: 20181211
  Receipt Date: 20181211
  Transmission Date: 20190205
  Serious: Yes (Hospitalization)
  Sender: FDA-Public Use
  Company Number: GB-SAKK-2018SA329118AA

PATIENT
  Sex: Male

DRUGS (1)
  1. LANTUS [Suspect]
     Active Substance: INSULIN GLARGINE
     Dosage: 42 U, QD
     Route: 065

REACTIONS (6)
  - Blood glucose increased [Unknown]
  - Syncope [Unknown]
  - Anxiety [Unknown]
  - Depression [Unknown]
  - Blood glucose abnormal [Unknown]
  - Acetonaemia [Unknown]
